FAERS Safety Report 25334731 (Version 2)
Quarter: 2025Q2

REPORT INFORMATION
  Report Type: Spontaneous
  Country: US (occurrence: US)
  Receive Date: 20250520
  Receipt Date: 20250603
  Transmission Date: 20250717
  Serious: Yes (Other)
  Sender: AMGEN
  Company Number: US-AMGEN-USASP2025095134

PATIENT
  Age: 82 Year
  Sex: Female

DRUGS (1)
  1. EVENITY [Suspect]
     Active Substance: ROMOSOZUMAB-AQQG
     Indication: Osteoporosis postmenopausal
     Dosage: 210 MILLIGRAM, QMO
     Route: 065
     Dates: start: 202503, end: 202505

REACTIONS (2)
  - Lung squamous cell carcinoma metastatic [Unknown]
  - Pelvic neoplasm [Not Recovered/Not Resolved]

NARRATIVE: CASE EVENT DATE: 20250101
